FAERS Safety Report 15360621 (Version 2)
Quarter: 2018Q3

REPORT INFORMATION
  Report Type: Other
  Country: FR (occurrence: FR)
  Receive Date: 20180907
  Receipt Date: 20180919
  Transmission Date: 20181010
  Serious: Yes (Hospitalization)
  Sender: FDA-Public Use
  Company Number: FR-APPCO PHARMA LLC-2054712

PATIENT
  Age: 79 Year
  Sex: Male

DRUGS (3)
  1. RIVAROXABAN [Interacting]
     Active Substance: RIVAROXABAN
     Route: 065
  2. AMIODARONE HYDROCHLORIDE. [Interacting]
     Active Substance: AMIODARONE HYDROCHLORIDE
     Route: 065
  3. PRAVASTATIN SODIUM. [Suspect]
     Active Substance: PRAVASTATIN SODIUM
     Indication: PRODUCT USED FOR UNKNOWN INDICATION
     Route: 065

REACTIONS (2)
  - Drug interaction [Unknown]
  - Cerebral haematoma [Unknown]
